FAERS Safety Report 24345831 (Version 1)
Quarter: 2024Q3

REPORT INFORMATION
  Report Type: Spontaneous
  Country: ES (occurrence: ES)
  Receive Date: 20240920
  Receipt Date: 20240920
  Transmission Date: 20241016
  Serious: Yes (Life-Threatening, Hospitalization)
  Sender: TEVA
  Company Number: None

PATIENT
  Age: 61 Year
  Sex: Male

DRUGS (6)
  1. RISPERIDONE [Suspect]
     Active Substance: RISPERIDONE
     Indication: Product used for unknown indication
     Dosage: ORAL SOLUTION/SUSPENSION 100 ML 1 BOTTLE
     Route: 065
     Dates: start: 20230213
  2. METFORMIN HYDROCHLORIDE\SITAGLIPTIN PHOSPHATE [Concomitant]
     Active Substance: METFORMIN HYDROCHLORIDE\SITAGLIPTIN PHOSPHATE
     Indication: Diabetes mellitus
     Dosage: SITAGLIPTINA/METFORMINA 50 MG/1,000 MG 56 TABLETS
     Route: 065
     Dates: start: 202308
  3. PALIPERIDONE PALMITATE [Suspect]
     Active Substance: PALIPERIDONE PALMITATE
     Indication: Product used for unknown indication
     Dosage: EXTENDED-RELEASE INJECTION SUSPENSION, 1 PRE-FILLED SYRINGE OF 0.5 ML
     Route: 065
     Dates: start: 20220731
  4. PALIPERIDONE PALMITATE [Suspect]
     Active Substance: PALIPERIDONE PALMITATE
     Indication: Product used for unknown indication
     Dosage: EXTENDED-RELEASE INJECTION SUSPENSION, 1 PRE-FILLED SYRINGE OF 0.75 ML
     Route: 065
     Dates: start: 20220201
  5. AMLODIPINE BESYLATE [Concomitant]
     Active Substance: AMLODIPINE BESYLATE
     Indication: Hypertension
     Dosage: 30 TABLETS
     Route: 065
     Dates: start: 2023
  6. OLMESARTAN [Concomitant]
     Active Substance: OLMESARTAN
     Indication: Product used for unknown indication
     Dosage: 28 TABLETS
     Route: 065
     Dates: start: 2023

REACTIONS (1)
  - Neuroleptic malignant syndrome [Recovering/Resolving]

NARRATIVE: CASE EVENT DATE: 20240806
